FAERS Safety Report 13725655 (Version 2)
Quarter: 2017Q3

REPORT INFORMATION
  Report Type: Spontaneous
  Country: FR (occurrence: FR)
  Receive Date: 20170706
  Receipt Date: 20170922
  Transmission Date: 20171127
  Serious: Yes (Other)
  Sender: FDA-Public Use
  Company Number: FR-BAYER-2017-129027

PATIENT
  Age: 41 Year
  Sex: Female

DRUGS (1)
  1. MIRENA [Suspect]
     Active Substance: LEVONORGESTREL
     Indication: CONTRACEPTION
     Dosage: 20 MCG/24HR, CONT
     Route: 015
     Dates: start: 20121105, end: 20170609

REACTIONS (15)
  - Arthralgia [Recovered/Resolved]
  - Vertigo [Recovering/Resolving]
  - Cyst [Not Recovered/Not Resolved]
  - Ovarian cyst [Recovering/Resolving]
  - Headache [Recovering/Resolving]
  - Hot flush [Recovered/Resolved]
  - Constipation [Recovering/Resolving]
  - Limb discomfort [Recovering/Resolving]
  - Urinary tract infection [Recovered/Resolved]
  - Depressed mood [Recovering/Resolving]
  - Visual impairment [Recovered/Resolved]
  - Abdominal distension [Recovering/Resolving]
  - Hypertrichosis [Recovering/Resolving]
  - Neck pain [Recovered/Resolved]
  - Fatigue [Not Recovered/Not Resolved]

NARRATIVE: CASE EVENT DATE: 201305
